FAERS Safety Report 7605182-6 (Version None)
Quarter: 2011Q3

REPORT INFORMATION
  Report Type: 
  Country: None (occurrence: None)
  Receive Date: 20110705
  Receipt Date: 20110620
  Transmission Date: 20111222
  Serious: Yes (Other)
  Sender: FDA-Public Use
  Company Number: 2011MA008091

PATIENT
  Age: 59 Year
  Sex: Female

DRUGS (3)
  1. EPIRUBICIN HYDROCHLORIDE [Suspect]
     Indication: CHEMOTHERAPY
     Dates: start: 20080923
  2. TAXOTERE [Suspect]
     Dosage: IV
     Route: 042
     Dates: start: 20080923
  3. CYCLOPHOSPHAMIDE [Suspect]
     Indication: CHEMOTHERAPY

REACTIONS (2)
  - ALOPECIA [None]
  - MADAROSIS [None]
